FAERS Safety Report 6123875-7 (Version None)
Quarter: 2009Q1

REPORT INFORMATION
  Report Type: 
  Country: None (occurrence: None)
  Receive Date: 20090319
  Receipt Date: 20090316
  Transmission Date: 20090719
  Serious: Yes (Hospitalization)
  Sender: FDA-Public Use
  Company Number: KR-BRISTOL-MYERS SQUIBB COMPANY-14548937

PATIENT
  Age: 33 Year

DRUGS (1)
  1. APROVEL [Suspect]
     Indication: HYPERTENSION
     Dosage: 1 DOSAGE FROM= 150~300MG
     Route: 048
     Dates: start: 20080916, end: 20080922

REACTIONS (2)
  - ERYTHEMA MULTIFORME [None]
  - TOXIC EPIDERMAL NECROLYSIS [None]
